FAERS Safety Report 19273972 (Version 1)
Quarter: 2021Q2

REPORT INFORMATION
  Report Type: Report from Study
  Country: KR (occurrence: KR)
  Receive Date: 20210519
  Receipt Date: 20210519
  Transmission Date: 20210717
  Serious: Yes (Hospitalization)
  Sender: FDA-Public Use
  Company Number: KR-ROCHE-2781981

PATIENT
  Age: 72 Year
  Sex: Female
  Weight: 37 kg

DRUGS (25)
  1. LIPITOR [Concomitant]
     Active Substance: ATORVASTATIN CALCIUM
     Indication: DYSLIPIDAEMIA
     Route: 048
  2. DILATREND [Concomitant]
     Active Substance: CARVEDILOL
     Indication: HYPERTENSION
     Route: 048
     Dates: start: 20210129
  3. HEPARIN SODIUM. [Concomitant]
     Active Substance: HEPARIN SODIUM
     Route: 042
  4. SODIUM BICARBONATE. [Concomitant]
     Active Substance: SODIUM BICARBONATE
     Indication: BLOOD CREATININE INCREASED
     Route: 042
  5. FEROBA U [Concomitant]
     Active Substance: FERROUS SULFATE
     Indication: ANAEMIA
     Route: 048
     Dates: start: 20210122
  6. AMPHOTERICIN [Concomitant]
     Active Substance: AMPHOTERICIN B
     Route: 042
     Dates: start: 20210201
  7. NORVASC [Concomitant]
     Active Substance: AMLODIPINE BESYLATE
     Indication: HYPERTENSION
     Route: 048
     Dates: start: 20210128
  8. ULTRACET [Concomitant]
     Active Substance: ACETAMINOPHEN\TRAMADOL HYDROCHLORIDE
     Indication: ABDOMINAL PAIN
     Route: 048
     Dates: start: 20210215
  9. PRALSETINIB. [Suspect]
     Active Substance: PRALSETINIB
     Indication: GASTROINTESTINAL CARCINOMA
     Route: 048
     Dates: start: 20210107, end: 20210119
  10. PRALSETINIB. [Suspect]
     Active Substance: PRALSETINIB
     Route: 048
     Dates: start: 20210125, end: 20210221
  11. GODEX (SOUTH KOREA) [Concomitant]
     Route: 048
     Dates: start: 20210215, end: 20210221
  12. LIXIANA [Concomitant]
     Active Substance: EDOXABAN TOSYLATE
     Indication: PULMONARY EMBOLISM
     Route: 048
     Dates: start: 20210208
  13. POTASSIUM CHLORIDE. [Concomitant]
     Active Substance: POTASSIUM CHLORIDE
     Dates: start: 20210225
  14. PRALSETINIB. [Suspect]
     Active Substance: PRALSETINIB
     Route: 048
     Dates: start: 20210226
  15. QUETAPIN [Concomitant]
     Indication: PROPHYLAXIS
  16. URSA [Concomitant]
     Active Substance: URSODIOL
     Indication: ASPARTATE AMINOTRANSFERASE INCREASED
     Route: 048
     Dates: start: 20210209, end: 20210222
  17. GODEX (SOUTH KOREA) [Concomitant]
     Route: 048
     Dates: start: 20210222
  18. BEAROBAN [Concomitant]
     Indication: MUCOSAL INFLAMMATION
     Route: 065
     Dates: start: 20210130, end: 20210221
  19. LEVAN H [Concomitant]
     Active Substance: .ALPHA.-TOCOPHEROL ACETATE\ALLANTOIN\LIDOCAINE\PREDNISOLONE
     Route: 061
     Dates: start: 20210208
  20. MACPERAN [Concomitant]
     Active Substance: METOCLOPRAMIDE HYDROCHLORIDE
     Indication: NAUSEA
     Route: 042
     Dates: start: 20201231
  21. MACPERAN [Concomitant]
     Active Substance: METOCLOPRAMIDE HYDROCHLORIDE
     Route: 048
     Dates: start: 20210210
  22. LOPERAMIDE [Concomitant]
     Active Substance: LOPERAMIDE
     Route: 048
     Dates: start: 20210223
  23. FURTMAN [Concomitant]
     Route: 065
     Dates: start: 20210227
  24. VIGAMOX [Concomitant]
     Active Substance: MOXIFLOXACIN HYDROCHLORIDE
     Dates: start: 20210201
  25. FLUNAZOLE [Concomitant]
     Active Substance: FLUCONAZOLE
     Indication: ENDOPHTHALMITIS
     Route: 048
     Dates: start: 20210215

REACTIONS (2)
  - Acute kidney injury [Recovered/Resolved]
  - Anaemia [Recovered/Resolved]

NARRATIVE: CASE EVENT DATE: 20210222
